FAERS Safety Report 23637102 (Version 2)
Quarter: 2024Q1

REPORT INFORMATION
  Report Type: Spontaneous
  Country: US (occurrence: US)
  Receive Date: 20240315
  Receipt Date: 20240327
  Transmission Date: 20240410
  Serious: Yes (Hospitalization)
  Sender: FDA-Public Use
  Company Number: US-ELI_LILLY_AND_COMPANY-US202402012608

PATIENT
  Age: 80 Year

DRUGS (2)
  1. ADCIRCA [Suspect]
     Active Substance: TADALAFIL
     Indication: Pulmonary arterial hypertension
     Dosage: 40 MG, DAILY
     Route: 048
     Dates: start: 202205
  2. ADCIRCA [Suspect]
     Active Substance: TADALAFIL
     Dosage: 20 MG, BID
     Route: 048

REACTIONS (2)
  - Post procedural infection [Unknown]
  - Inappropriate schedule of product administration [Unknown]
